FAERS Safety Report 15699823 (Version 1)
Quarter: 2018Q4

REPORT INFORMATION
  Report Type: Report from Study
  Country: PE (occurrence: PE)
  Receive Date: 20181207
  Receipt Date: 20181207
  Transmission Date: 20190205
  Serious: Yes (Hospitalization)
  Sender: FDA-Public Use
  Company Number: PE-SA-2018SA274336

PATIENT
  Age: 87 Year
  Sex: Female

DRUGS (5)
  1. IRBESARTAN. [Concomitant]
     Active Substance: IRBESARTAN
     Indication: HYPERTENSION
     Dosage: 150 MG, QD
     Route: 048
     Dates: start: 2016
  2. HYDROCHLOROTHIAZIDE/IRBESARTAN [Suspect]
     Active Substance: HYDROCHLOROTHIAZIDE\IRBESARTAN
     Indication: HYPERTENSION
     Dosage: 1 DF, QD (300/25 MG)
     Route: 048
     Dates: start: 201605
  3. IBUPROFEN. [Concomitant]
     Active Substance: IBUPROFEN
     Indication: OSTEOARTHRITIS
     Dosage: UNK UNK, QD
     Route: 048
     Dates: start: 2016
  4. NEBILET [Concomitant]
     Active Substance: NEBIVOLOL
     Indication: HYPERTENSION
     Dosage: 2.5 MG, QD
     Route: 048
     Dates: start: 2016
  5. AMLODIPINE [Concomitant]
     Active Substance: AMLODIPINE BESYLATE
     Dosage: UNK

REACTIONS (13)
  - Hemiparesis [Not Recovered/Not Resolved]
  - Oropharyngeal pain [Recovered/Resolved]
  - Haemoglobin decreased [Recovered/Resolved]
  - Headache [Recovered/Resolved]
  - Drug ineffective [Unknown]
  - Blood glucose increased [Recovering/Resolving]
  - Facial paresis [Not Recovered/Not Resolved]
  - Blood pressure increased [Recovered/Resolved]
  - Mastoiditis [Recovering/Resolving]
  - Cerebral ischaemia [Recovering/Resolving]
  - Unevaluable event [Recovering/Resolving]
  - Urinary tract infection [Recovered/Resolved]
  - Arteriosclerosis [Not Recovered/Not Resolved]

NARRATIVE: CASE EVENT DATE: 20180918
